FAERS Safety Report 16078016 (Version 1)
Quarter: 2019Q1

REPORT INFORMATION
  Report Type: Report from Study
  Country: US (occurrence: US)
  Receive Date: 20190315
  Receipt Date: 20190315
  Transmission Date: 20190418
  Serious: Yes (Hospitalization, Other)
  Sender: FDA-Public Use
  Company Number: US-JNJFOC-20190314972

PATIENT

DRUGS (1)
  1. IBRUTINIB [Suspect]
     Active Substance: IBRUTINIB
     Indication: CHRONIC LYMPHOCYTIC LEUKAEMIA
     Route: 048

REACTIONS (7)
  - Pneumonia [Unknown]
  - Pyrexia [Unknown]
  - Pancytopenia [Unknown]
  - Atrial fibrillation [Unknown]
  - Sepsis [Unknown]
  - Neutropenia [Unknown]
  - Haemorrhage [Unknown]
